FAERS Safety Report 8618149 (Version 2)
Quarter: 2014Q4

REPORT INFORMATION
  Report Type: Spontaneous
  Country: US (occurrence: US)
  Receive Date: 20120615
  Receipt Date: 20141001
  Transmission Date: 20150529
  Serious: No
  Sender: FDA-Public Use
  Company Number: US-ASTRAZENECA-2012SE37103

PATIENT
  Age: 76 Year
  Sex: Female
  Weight: 56.7 kg

DRUGS (7)
  1. NEXIUM 24HR [Suspect]
     Active Substance: ESOMEPRAZOLE MAGNESIUM
     Route: 048
     Dates: start: 201408
  2. SIMVASTATIN. [Concomitant]
     Active Substance: SIMVASTATIN
  3. NEXIUM [Suspect]
     Active Substance: ESOMEPRAZOLE MAGNESIUM
     Indication: HIATUS HERNIA
     Route: 048
     Dates: start: 201201, end: 201408
  4. CRITICAL PLUS C [Concomitant]
  5. ZOCOR [Concomitant]
     Active Substance: SIMVASTATIN
  6. NEXIUM [Suspect]
     Active Substance: ESOMEPRAZOLE MAGNESIUM
     Indication: EROSIVE OESOPHAGITIS
     Route: 048
     Dates: start: 201201, end: 201408
  7. FISH OIL [Concomitant]
     Active Substance: FISH OIL

REACTIONS (3)
  - Constipation [Unknown]
  - Haemoglobin decreased [Unknown]
  - Product use issue [Unknown]

NARRATIVE: CASE EVENT DATE: 2013
